FAERS Safety Report 11645949 (Version 3)
Quarter: 2016Q3

REPORT INFORMATION
  Report Type: Report from Study
  Country: US (occurrence: US)
  Receive Date: 20151020
  Receipt Date: 20160823
  Transmission Date: 20161109
  Serious: Yes (Death)
  Sender: FDA-Public Use
  Company Number: US-ROCHE-1608924

PATIENT
  Sex: Male
  Weight: 69.01 kg

DRUGS (2)
  1. ESBRIET [Suspect]
     Active Substance: PIRFENIDONE
     Indication: IDIOPATHIC PULMONARY FIBROSIS
     Dosage: 3 CAPSULES 3 TIMES A DAY
     Route: 048
     Dates: start: 20150430
  2. ESBRIET [Suspect]
     Active Substance: PIRFENIDONE
     Route: 048
     Dates: start: 20160119

REACTIONS (9)
  - Blood pressure decreased [Unknown]
  - Malaise [Unknown]
  - Nausea [Unknown]
  - Death [Fatal]
  - Sinusitis [Unknown]
  - Dizziness [Unknown]
  - Abdominal distension [Unknown]
  - Nasal congestion [Unknown]
  - Abdominal pain upper [Unknown]
